FAERS Safety Report 18579533 (Version 1)
Quarter: 2020Q4

REPORT INFORMATION
  Report Type: Spontaneous
  Country: US (occurrence: US)
  Receive Date: 20201204
  Receipt Date: 20201204
  Transmission Date: 20210114
  Serious: Yes (Other)
  Sender: FDA-Public Use
  Company Number: US-PFIZER INC-2020477598

PATIENT
  Age: 66 Year
  Sex: Female

DRUGS (2)
  1. CLONIDINE. [Interacting]
     Active Substance: CLONIDINE
     Dosage: UNK
  2. XELJANZ [Suspect]
     Active Substance: TOFACITINIB CITRATE
     Dosage: 5 MG
     Dates: start: 20201115

REACTIONS (2)
  - Bradycardia [Unknown]
  - Drug interaction [Unknown]
